FAERS Safety Report 15869252 (Version 1)
Quarter: 2019Q1

REPORT INFORMATION
  Report Type: Spontaneous
  Country: GB (occurrence: GB)
  Receive Date: 20190125
  Receipt Date: 20190125
  Transmission Date: 20190417
  Serious: Yes (Hospitalization, Other)
  Sender: FDA-Public Use
  Company Number: GB-PFIZER INC-2019028938

PATIENT
  Age: 6 Year
  Sex: Male
  Weight: 19.5 kg

DRUGS (3)
  1. GENOTROPIN [Suspect]
     Active Substance: SOMATROPIN
     Dosage: 0.8 MG, 1X/DAY
     Route: 051
     Dates: start: 201808
  2. GENOTROPIN [Suspect]
     Active Substance: SOMATROPIN
     Indication: SMALL FOR DATES BABY
     Dosage: 0.7 MG, 1X/DAY
     Route: 051
     Dates: start: 201608, end: 201808
  3. CALPOL [Concomitant]
     Active Substance: ACETAMINOPHEN
     Indication: COUGH
     Dosage: UNK

REACTIONS (1)
  - Blood urine present [Recovering/Resolving]

NARRATIVE: CASE EVENT DATE: 20180907
